FAERS Safety Report 10037529 (Version 1)
Quarter: 2014Q1

REPORT INFORMATION
  Report Type: Report from Study
  Country: US (occurrence: US)
  Receive Date: 20140326
  Receipt Date: 20140326
  Transmission Date: 20141002
  Serious: Yes (Death)
  Sender: FDA-Public Use
  Company Number: US-ASTELLAS-2014US003045

PATIENT
  Sex: Female

DRUGS (5)
  1. ERLOTINIB TABLET [Suspect]
     Indication: BILE DUCT CANCER
     Dosage: UNK
     Route: 065
  2. ERLOTINIB TABLET [Suspect]
     Indication: PANCREATIC CARCINOMA
  3. AVASTIN /01555201/ [Suspect]
     Indication: BILE DUCT CANCER
     Dosage: UNK
     Route: 065
     Dates: start: 20110729
  4. AVASTIN /01555201/ [Suspect]
     Indication: METASTASES TO GASTROINTESTINAL TRACT
     Dosage: UNK
     Route: 065
     Dates: start: 20110812
  5. COUMADIN                           /00014802/ [Concomitant]
     Indication: PRODUCT USED FOR UNKNOWN INDICATION
     Dosage: UNK
     Route: 065

REACTIONS (2)
  - Off label use [Unknown]
  - Death [Fatal]
